FAERS Safety Report 4667361-X (Version None)
Quarter: 2005Q2

REPORT INFORMATION
  Report Type: 
  Country: None (occurrence: None)
  Receive Date: 20050519
  Receipt Date: 20050519
  Transmission Date: 20051028
  Serious: Yes (Hospitalization)
  Sender: FDA-Public Use
  Company Number: None

PATIENT
  Sex: Male
  Weight: 105.9 kg

DRUGS (4)
  1. KETOCONAZOLE [Suspect]
     Dosage: 400 TID PO X 7 DAYS EVERY OTHER WEEK
     Route: 048
     Dates: start: 20050127
  2. ADRIAMYCIN PFS [Suspect]
     Dosage: 20 MG/M2 IV DAY 1, DAY 15, DAY 28,
     Route: 042
     Dates: start: 20050127
  3. ESTRAMUSTINE [Suspect]
     Dosage: 140 MG TID X 7 DAYS EVERY OTHER WWEEK
     Dates: start: 20050127
  4. VINBLASTINE [Suspect]
     Dosage: 4MG/M2 DAY 8, DAY 11, DAY 36

REACTIONS (1)
  - PATHOLOGICAL FRACTURE [None]
